FAERS Safety Report 8469159-3 (Version None)
Quarter: 2012Q2

REPORT INFORMATION
  Report Type: 
  Country: None (occurrence: None)
  Receive Date: 20120626
  Receipt Date: 20110519
  Transmission Date: 20120825
  Serious: Yes (Disabling)
  Sender: FDA-Public Use
  Company Number: US-MUTUAL PHARMACEUTICAL COMPANY, INC.-MTCA20110885

PATIENT
  Sex: 0

DRUGS (4)
  1. METOCLOPRAMIDE [Suspect]
     Indication: DYSPEPSIA
  2. REGLAN [Suspect]
     Indication: DYSPEPSIA
  3. METOCLOPRAMIDE [Suspect]
     Indication: ABDOMINAL DISTENSION
     Route: 048
     Dates: start: 20080201, end: 20100901
  4. REGLAN [Suspect]
     Indication: ABDOMINAL DISTENSION
     Route: 048
     Dates: start: 20080201, end: 20100901

REACTIONS (5)
  - TARDIVE DYSKINESIA [None]
  - AKATHISIA [None]
  - TREMOR [None]
  - EXTRAPYRAMIDAL DISORDER [None]
  - DYSTONIA [None]
